FAERS Safety Report 7360743-7 (Version None)
Quarter: 2011Q1

REPORT INFORMATION
  Report Type: 
  Country: None (occurrence: None)
  Receive Date: 20110318
  Receipt Date: 20081202
  Transmission Date: 20110831
  Serious: Yes (Death, Disabling, Other)
  Sender: FDA-Public Use
  Company Number: US-BAYER-200840486NA

PATIENT
  Sex: Male
  Weight: 95 kg

DRUGS (2)
  1. TRASYLOL [Suspect]
     Indication: CORONARY ARTERY BYPASS
     Route: 042
     Dates: start: 20061001
  2. TRASYLOL [Suspect]
     Dosage: UNK
     Route: 042
     Dates: start: 20050101

REACTIONS (8)
  - RENAL FAILURE [None]
  - INJURY [None]
  - PAIN [None]
  - ANHEDONIA [None]
  - EMOTIONAL DISTRESS [None]
  - ANXIETY [None]
  - RENAL FAILURE ACUTE [None]
  - UNEVALUABLE EVENT [None]
